FAERS Safety Report 8202367-5 (Version None)
Quarter: 2012Q1

REPORT INFORMATION
  Report Type: 
  Country: None (occurrence: None)
  Receive Date: 20120312
  Receipt Date: 20111031
  Transmission Date: 20120608
  Serious: No
  Sender: FDA-Public Use
  Company Number: US-ABBOTT-11P-163-0870654-00

PATIENT
  Age: 6 Year
  Sex: Male

DRUGS (3)
  1. SINGULAIR [Concomitant]
     Indication: PRODUCT USED FOR UNKNOWN INDICATION
  2. LAMICTAL [Concomitant]
     Indication: PRODUCT USED FOR UNKNOWN INDICATION
  3. DEPAKOTE [Suspect]
     Indication: TUBEROUS SCLEROSIS
     Route: 048
     Dates: start: 20110701

REACTIONS (3)
  - INCREASED APPETITE [None]
  - WEIGHT INCREASED [None]
  - ALOPECIA [None]
